FAERS Safety Report 17398509 (Version 1)
Quarter: 2020Q1

REPORT INFORMATION
  Report Type: Spontaneous
  Country: RU (occurrence: RU)
  Receive Date: 20200210
  Receipt Date: 20200210
  Transmission Date: 20200409
  Serious: Yes (Death)
  Sender: FDA-Public Use
  Company Number: NVSC2020RU034755

PATIENT
  Age: 27 Year
  Sex: Male

DRUGS (2)
  1. PACLITAXEL. [Suspect]
     Active Substance: PACLITAXEL
     Indication: SQUAMOUS CELL CARCINOMA
     Dosage: 175 MG/M2, CYCLIC (EVERY 3 WEEK)
     Route: 065
  2. CARBOPLATIN. [Suspect]
     Active Substance: CARBOPLATIN
     Indication: SQUAMOUS CELL CARCINOMA
     Dosage: UNK, CYCLIC (EVERY 3 WEEK)
     Route: 065

REACTIONS (2)
  - Body temperature increased [Fatal]
  - Asthenia [Fatal]

NARRATIVE: CASE EVENT DATE: 201805
